FAERS Safety Report 7285425-1 (Version None)
Quarter: 2011Q1

REPORT INFORMATION
  Report Type: 
  Country: None (occurrence: None)
  Receive Date: 20110121
  Receipt Date: 20090911
  Transmission Date: 20110831
  Serious: No
  Sender: FDA-Public Use
  Company Number: AE 2009-115

PATIENT
  Age: 66 Year
  Sex: Female

DRUGS (3)
  1. FAZACLO ODT [Suspect]
     Indication: SCHIZOPHRENIA, PARANOID TYPE
     Dosage: 100 MG DAILY PO
     Route: 048
     Dates: start: 20090728, end: 20090828
  2. VITAMIN D [Concomitant]
  3. BENZTROPINE MESYLATE [Concomitant]

REACTIONS (2)
  - SEDATION [None]
  - PARKINSONISM [None]
